FAERS Safety Report 7642097-1 (Version None)
Quarter: 2011Q3

REPORT INFORMATION
  Report Type: 
  Country: None (occurrence: None)
  Receive Date: 20110728
  Receipt Date: 20110720
  Transmission Date: 20111222
  Serious: Yes (Life-Threatening)
  Sender: FDA-Public Use
  Company Number: DE-ELI_LILLY_AND_COMPANY-DE201107005515

PATIENT
  Age: 55 Year
  Sex: Female

DRUGS (1)
  1. GEMZAR [Suspect]
     Indication: BREAST CANCER METASTATIC
     Dosage: 1805 MG, ONE SEPARATE DOSE
     Route: 042
     Dates: start: 20110707, end: 20110714

REACTIONS (3)
  - CYANOSIS [None]
  - DIZZINESS [None]
  - SYNCOPE [None]
